FAERS Safety Report 17361271 (Version 2)
Quarter: 2020Q1

REPORT INFORMATION
  Report Type: Report from Study
  Country: US (occurrence: US)
  Receive Date: 20200203
  Receipt Date: 20200210
  Transmission Date: 20200409
  Serious: Yes (Other)
  Sender: FDA-Public Use
  Company Number: US-MYLANLABS-2019M1076902

PATIENT
  Sex: Male
  Weight: 82 kg

DRUGS (3)
  1. ALBUTEROL                          /00139501/ [Concomitant]
     Active Substance: ALBUTEROL
     Dosage: UNK
  2. GLATIRAMER ACETATE INJECTION [Suspect]
     Active Substance: GLATIRAMER ACETATE
     Indication: RELAPSING-REMITTING MULTIPLE SCLEROSIS
     Dosage: 40 MILLIGRAM, 3XW
     Route: 058
  3. GLATIRAMER ACETATE INJECTION [Suspect]
     Active Substance: GLATIRAMER ACETATE
     Indication: MULTIPLE SCLEROSIS
     Dosage: UNK

REACTIONS (4)
  - Central nervous system lesion [Unknown]
  - Hypoaesthesia [Not Recovered/Not Resolved]
  - Drug ineffective [Not Recovered/Not Resolved]
  - Multiple sclerosis [Unknown]

NARRATIVE: CASE EVENT DATE: 2019
